FAERS Safety Report 26115017 (Version 1)
Quarter: 2025Q4

REPORT INFORMATION
  Report Type: Spontaneous
  Country: US (occurrence: US)
  Receive Date: 20251203
  Receipt Date: 20251203
  Transmission Date: 20260117
  Serious: No
  Sender: ELI LILLY AND COMPANY
  Company Number: US-ELI_LILLY_AND_COMPANY-US202511024780

PATIENT
  Sex: Female

DRUGS (1)
  1. ZEPBOUND [Suspect]
     Active Substance: TIRZEPATIDE
     Indication: Product used for unknown indication
     Dosage: 5 MG, WEEKLY (1/W)
     Route: 065

REACTIONS (6)
  - Intentional product misuse [Unknown]
  - Sunburn [Unknown]
  - Feeling abnormal [Unknown]
  - Back pain [Unknown]
  - Fatigue [Unknown]
  - Pain of skin [Unknown]

NARRATIVE: CASE EVENT DATE: 20251118
